FAERS Safety Report 13892976 (Version 1)
Quarter: 2017Q3

REPORT INFORMATION
  Report Type: Spontaneous
  Country: US (occurrence: US)
  Receive Date: 20170822
  Receipt Date: 20170822
  Transmission Date: 20171127
  Serious: No
  Sender: FDA-Public Use
  Company Number: US-ROCHE-1077255

PATIENT
  Sex: Female

DRUGS (3)
  1. TRENTAL [Interacting]
     Active Substance: PENTOXIFYLLINE
     Indication: RADIATION NECROSIS
     Route: 065
  2. VITAMIN E [Interacting]
     Active Substance: .ALPHA.-TOCOPHEROL
     Indication: RADIATION NECROSIS
     Route: 065
  3. HERCEPTIN [Suspect]
     Active Substance: TRASTUZUMAB
     Indication: BREAST CANCER METASTATIC
     Route: 042

REACTIONS (1)
  - Wrong technique in product usage process [Unknown]
